FAERS Safety Report 7854005-9 (Version None)
Quarter: 2011Q4

REPORT INFORMATION
  Report Type: 
  Country: None (occurrence: None)
  Receive Date: 20111026
  Receipt Date: 20111020
  Transmission Date: 20120403
  Serious: No
  Sender: FDA-Public Use
  Company Number: US-PFIZER INC-2011254850

PATIENT
  Sex: Female

DRUGS (1)
  1. GLIPIZIDE [Suspect]
     Dosage: UNK

REACTIONS (5)
  - MALAISE [None]
  - VOMITING [None]
  - EYE OEDEMA [None]
  - OCULAR HYPERAEMIA [None]
  - PRURITUS [None]
